FAERS Safety Report 19707914 (Version 1)
Quarter: 2021Q3

REPORT INFORMATION
  Report Type: Spontaneous
  Country: US (occurrence: US)
  Receive Date: 20210817
  Receipt Date: 20210817
  Transmission Date: 20211014
  Serious: No
  Sender: FDA-Public Use
  Company Number: None

PATIENT
  Age: 74 Year
  Sex: Male

DRUGS (1)
  1. SULFUR HEXAFLUORIDE(SULFUR HEXAFLUORIDE MICROSPHERE 25MG/VIL INJ,SUSP) [Suspect]
     Active Substance: SULFUR HEXAFLUORIDE
     Indication: CARDIAC OPERATION
     Route: 042
     Dates: start: 20210429, end: 20210429

REACTIONS (1)
  - Anaphylactic reaction [None]

NARRATIVE: CASE EVENT DATE: 20210429
